FAERS Safety Report 7534052-7 (Version None)
Quarter: 2011Q2

REPORT INFORMATION
  Report Type: 
  Country: None (occurrence: None)
  Receive Date: 20110608
  Receipt Date: 20060915
  Transmission Date: 20111010
  Serious: Yes (Other)
  Sender: FDA-Public Use
  Company Number: PHHO2006BR15753

PATIENT
  Age: 56 Year
  Sex: Male
  Weight: 88 kg

DRUGS (6)
  1. EFFEXOR [Concomitant]
     Indication: DEPRESSION
     Dosage: 80 MG, QD
     Route: 048
     Dates: start: 20020101
  2. AVANDIA [Concomitant]
     Indication: DIABETES MELLITUS
     Dosage: 4 MG, QD
     Route: 048
  3. DIOVAN [Suspect]
     Indication: HYPERTENSION
     Dosage: 160 MG, QD
     Route: 048
  4. ASPIRIN [Concomitant]
     Dosage: 100 MG, QD
     Route: 048
  5. LEXOTAN [Concomitant]
     Indication: ANXIETY
     Dosage: 3 MG, UNK
     Route: 048
  6. DIOVAN [Suspect]
     Dosage: 360 MG, QD
     Route: 048

REACTIONS (3)
  - DIZZINESS [None]
  - MALAISE [None]
  - HYPERTENSIVE CRISIS [None]
